FAERS Safety Report 4736855-0 (Version None)
Quarter: 2005Q3

REPORT INFORMATION
  Report Type: 
  Country: None (occurrence: None)
  Receive Date: 20050808
  Receipt Date: 20050209
  Transmission Date: 20060218
  Serious: Yes (Other)
  Sender: FDA-Public Use
  Company Number: US-GLAXOSMITHKLINE-A0544823A

PATIENT
  Sex: Male

DRUGS (2)
  1. PAXIL [Suspect]
     Indication: DEPRESSION
     Route: 048
  2. UNKNOWN ANTIDEPRESSANT [Suspect]
     Indication: DEPRESSION
     Route: 065

REACTIONS (6)
  - AGGRESSION [None]
  - IMPULSIVE BEHAVIOUR [None]
  - IRRITABILITY [None]
  - MANIA [None]
  - SUICIDAL IDEATION [None]
  - SUICIDE ATTEMPT [None]
